FAERS Safety Report 5971848-7 (Version None)
Quarter: 2008Q4

REPORT INFORMATION
  Report Type: 
  Country: None (occurrence: None)
  Receive Date: 20081125
  Receipt Date: 20081112
  Transmission Date: 20090506
  Serious: Yes (Hospitalization)
  Sender: FDA-Public Use
  Company Number: 237193J08USA

PATIENT
  Age: 41 Year
  Sex: Female
  Weight: 113 kg

DRUGS (9)
  1. REBIF [Suspect]
     Indication: MULTIPLE SCLEROSIS
     Dosage: SUBCUTANEOUS
     Route: 058
     Dates: start: 20071116, end: 20080701
  2. REBIF [Suspect]
     Indication: MULTIPLE SCLEROSIS
     Dosage: SUBCUTANEOUS
     Route: 058
     Dates: start: 20080101
  3. REBIF [Suspect]
     Indication: MULTIPLE SCLEROSIS
     Dosage: SUBCUTANEOUS
     Route: 058
     Dates: start: 20080701
  4. ADDERALL (OBETROL) [Concomitant]
  5. LEXAPRO [Concomitant]
  6. ACIPHEX [Concomitant]
  7. CELEBREX [Concomitant]
  8. FLEXERIL [Concomitant]
  9. AMBIEN [Concomitant]

REACTIONS (6)
  - HEPATOMEGALY [None]
  - PNEUMONIA [None]
  - PULMONARY EMBOLISM [None]
  - TACHYCARDIA [None]
  - THYROID NEOPLASM [None]
  - URINARY TRACT INFECTION [None]
